FAERS Safety Report 14610956 (Version 1)
Quarter: 2018Q1

REPORT INFORMATION
  Report Type: Spontaneous
  Country: US (occurrence: US)
  Receive Date: 20180308
  Receipt Date: 20180308
  Transmission Date: 20180509
  Serious: No
  Sender: FDA-Public Use
  Company Number: US-JNJFOC-20180217393

PATIENT
  Age: 4 Year
  Sex: Male

DRUGS (1)
  1. CHILDRENS TYLENOL [Suspect]
     Active Substance: ACETAMINOPHEN
     Indication: PYREXIA
     Route: 048
     Dates: start: 20180205

REACTIONS (5)
  - Incorrect dose administered [Unknown]
  - Liquid product physical issue [Unknown]
  - Vomiting [Unknown]
  - Pyrexia [Unknown]
  - Retching [Unknown]

NARRATIVE: CASE EVENT DATE: 20180205
